FAERS Safety Report 13272543 (Version 1)
Quarter: 2017Q1

REPORT INFORMATION
  Report Type: Spontaneous
  Country: US (occurrence: US)
  Receive Date: 20170226
  Receipt Date: 20170226
  Transmission Date: 20170428
  Serious: Yes (Life-Threatening, Hospitalization)
  Sender: FDA-Public Use
  Company Number: None

PATIENT
  Age: 18 Year
  Sex: Male
  Weight: 76.5 kg

DRUGS (1)
  1. XYREM [Suspect]
     Active Substance: SODIUM OXYBATE
     Indication: NARCOLEPSY
     Route: 048

REACTIONS (8)
  - Pain [None]
  - Muscle tightness [None]
  - Hypoaesthesia [None]
  - Throat tightness [None]
  - Muscular weakness [None]
  - Paralysis [None]
  - Neck pain [None]
  - Dyspnoea [None]

NARRATIVE: CASE EVENT DATE: 20161010
